FAERS Safety Report 9788902 (Version 2)
Quarter: 2014Q4

REPORT INFORMATION
  Report Type: Spontaneous
  Country: US (occurrence: US)
  Receive Date: 20131230
  Receipt Date: 20141219
  Transmission Date: 20150529
  Serious: No
  Sender: FDA-Public Use
  Company Number: US-PFIZER INC-2013368739

PATIENT
  Age: 78 Year
  Sex: Female

DRUGS (43)
  1. CIPROFLOXACIN. [Suspect]
     Active Substance: CIPROFLOXACIN
     Dosage: UNK
  2. DOXEPIN HCL [Suspect]
     Active Substance: DOXEPIN HYDROCHLORIDE
     Dosage: UNK
  3. XANAX [Suspect]
     Active Substance: ALPRAZOLAM
     Dosage: UNK
  4. CARAFATE [Suspect]
     Active Substance: SUCRALFATE
     Dosage: UNK
  5. DEPAKOTE [Suspect]
     Active Substance: DIVALPROEX SODIUM
     Dosage: UNK
  6. SYNTHROID [Suspect]
     Active Substance: LEVOTHYROXINE SODIUM
     Dosage: UNK
  7. SUPRAX [Suspect]
     Active Substance: CEFIXIME
     Dosage: UNK
  8. DARVOCET [Suspect]
     Active Substance: ACETAMINOPHEN\PROPOXYPHENE HYDROCHLORIDE
     Dosage: UNK
  9. DITROPAN [Suspect]
     Active Substance: OXYBUTYNIN CHLORIDE
     Dosage: UNK
  10. HYDROCODONE [Suspect]
     Active Substance: HYDROCODONE
     Dosage: UNK
  11. NAPROSYN [Suspect]
     Active Substance: NAPROXEN
     Dosage: UNK
  12. TOLECTIN [Suspect]
     Active Substance: TOLMETIN SODIUM
     Dosage: UNK
  13. UNI-SED [Suspect]
     Active Substance: PSEUDOEPHEDRINE
     Dosage: UNK
  14. DETROL [Suspect]
     Active Substance: TOLTERODINE TARTRATE
     Dosage: UNK
  15. PREVACID [Suspect]
     Active Substance: LANSOPRAZOLE
     Dosage: UNK
  16. BIAXIN [Suspect]
     Active Substance: CLARITHROMYCIN
     Dosage: UNK
  17. BUSPAR [Suspect]
     Active Substance: BUSPIRONE HYDROCHLORIDE
     Dosage: UNK
  18. CODEINE [Suspect]
     Active Substance: CODEINE
     Dosage: UNK
  19. LORCET [Suspect]
     Active Substance: ACETAMINOPHEN\HYDROCODONE BITARTRATE
     Dosage: UNK
  20. ROBINUL [Suspect]
     Active Substance: GLYCOPYRROLATE
     Dosage: UNK
  21. TYLENOL [Suspect]
     Active Substance: ACETAMINOPHEN
     Dosage: UNK
  22. ZYRTEC [Suspect]
     Active Substance: CETIRIZINE HYDROCHLORIDE
     Dosage: UNK
  23. VALIUM [Suspect]
     Active Substance: DIAZEPAM
     Dosage: 5 MG, UNK
  24. DESYREL [Suspect]
     Active Substance: TRAZODONE HYDROCHLORIDE
     Dosage: UNK
  25. CECLOR [Suspect]
     Active Substance: CEFACLOR
     Dosage: UNK
  26. DEMEROL [Suspect]
     Active Substance: MEPERIDINE HYDROCHLORIDE
     Dosage: UNK
  27. LIPITOR [Suspect]
     Active Substance: ATORVASTATIN CALCIUM
     Dosage: UNK
  28. AXID AR [Suspect]
     Active Substance: NIZATIDINE
     Dosage: UNK
  29. CEFZIL [Suspect]
     Active Substance: CEFPROZIL
     Dosage: UNK
  30. MEDROL [Suspect]
     Active Substance: METHYLPREDNISOLONE
     Dosage: UNK
  31. MORPHINE SULFATE. [Suspect]
     Active Substance: MORPHINE SULFATE
     Dosage: UNK
  32. NYSTATIN. [Suspect]
     Active Substance: NYSTATIN
     Dosage: UNK
  33. ELAVIL [Suspect]
     Active Substance: AMITRIPTYLINE HYDROCHLORIDE
     Dosage: UNK
  34. TORADOL [Suspect]
     Active Substance: KETOROLAC TROMETHAMINE
     Dosage: UNK
  35. TORECAN [Suspect]
     Active Substance: THIETHYLPERAZINE MALATE
     Dosage: UNK
  36. ATARAX [Suspect]
     Active Substance: HYDROXYZINE\HYDROXYZINE HYDROCHLORIDE
     Dosage: UNK
  37. DYAZIDE [Suspect]
     Active Substance: HYDROCHLOROTHIAZIDE\TRIAMTERENE
     Dosage: UNK
  38. KLONOPIN [Suspect]
     Active Substance: CLONAZEPAM
     Dosage: UNK
  39. MEPERGAN [Suspect]
     Active Substance: MEPERIDINE HYDROCHLORIDE\PROMETHAZINE HYDROCHLORIDE
     Dosage: UNK
  40. ZOCOR [Suspect]
     Active Substance: SIMVASTATIN
     Dosage: UNK
  41. ZOLOFT [Suspect]
     Active Substance: SERTRALINE HYDROCHLORIDE
     Dosage: UNK
  42. BENADRYL [Suspect]
     Active Substance: DIPHENHYDRAMINE HYDROCHLORIDE
     Dosage: UNK
  43. DONNATAL [Suspect]
     Active Substance: ATROPINE SULFATE\HYOSCYAMINE SULFATE\PHENOBARBITAL\SCOPOLAMINE HYDROBROMIDE
     Dosage: UNK

REACTIONS (1)
  - Drug hypersensitivity [Unknown]
